FAERS Safety Report 5814769-2 (Version None)
Quarter: 2008Q3

REPORT INFORMATION
  Report Type: 
  Country: None (occurrence: None)
  Receive Date: 20080718
  Receipt Date: 20080716
  Transmission Date: 20090109
  Serious: Yes (Other)
  Sender: FDA-Public Use
  Company Number: GB-ROCHE-573572

PATIENT
  Sex: Female
  Weight: 80 kg

DRUGS (6)
  1. XENICAL [Suspect]
     Indication: OBESITY
     Route: 048
     Dates: start: 20080327, end: 20080701
  2. BENDROFLUMETHIAZIDE [Suspect]
     Indication: HYPERTENSION
     Route: 048
     Dates: start: 20071019, end: 20080627
  3. ASPIRIN [Concomitant]
     Route: 048
     Dates: start: 20071213
  4. SIMVASTATIN [Concomitant]
     Dosage: FREQUENCY REPORTED AS NOCTE
     Route: 048
     Dates: start: 20050818
  5. ACETAMINOPHEN W/ CODEINE [Concomitant]
  6. ACETAMINOPHEN [Concomitant]

REACTIONS (1)
  - HYPOKALAEMIA [None]
